FAERS Safety Report 23709837 (Version 1)
Quarter: 2024Q2

REPORT INFORMATION
  Report Type: Spontaneous
  Country: US (occurrence: US)
  Receive Date: 20240405
  Receipt Date: 20240405
  Transmission Date: 20240715
  Serious: Yes (Other)
  Sender: FDA-Public Use
  Company Number: US-MLMSERVICE-20240319-4890731-2

PATIENT
  Age: 64 Year
  Sex: Female

DRUGS (12)
  1. ERLOTINIB [Suspect]
     Active Substance: ERLOTINIB
     Indication: Ductal adenocarcinoma of pancreas
     Dosage: 100 MILLIGRAM, ONCE A DAY
     Route: 065
     Dates: start: 202302, end: 202307
  2. ERLOTINIB [Suspect]
     Active Substance: ERLOTINIB
     Indication: Metastases to lung
  3. ERLOTINIB [Suspect]
     Active Substance: ERLOTINIB
     Indication: Metastases to lymph nodes
  4. ERLOTINIB [Suspect]
     Active Substance: ERLOTINIB
     Indication: Metastases to liver
  5. ERLOTINIB [Suspect]
     Active Substance: ERLOTINIB
     Indication: Pancreatic carcinoma metastatic
  6. ERLOTINIB [Suspect]
     Active Substance: ERLOTINIB
     Indication: Malignant neoplasm progression
  7. GEMCITABINE [Suspect]
     Active Substance: GEMCITABINE
     Indication: Pancreatic carcinoma metastatic
     Dosage: UNK,1,000-600 MG/M2, ADJUSTED PER CYTOPENIA; FIRST 2 CYCLE DAYS 1, 8, AND 15 OF 28-DAY CYCLE
     Route: 065
     Dates: start: 202302, end: 2023
  8. GEMCITABINE [Suspect]
     Active Substance: GEMCITABINE
     Indication: Metastases to lung
     Dosage: UNK, 1,000-600 MG/M2, ADJUSTED PER CYTOPENIA; CYCLES 3, AND ONWARD EVERY OTHER WEEK
     Dates: start: 2023, end: 202307
  9. GEMCITABINE [Suspect]
     Active Substance: GEMCITABINE
     Indication: Metastases to lymph nodes
  10. GEMCITABINE [Suspect]
     Active Substance: GEMCITABINE
     Indication: Metastases to liver
  11. GEMCITABINE [Suspect]
     Active Substance: GEMCITABINE
     Indication: Ductal adenocarcinoma of pancreas
  12. GEMCITABINE [Suspect]
     Active Substance: GEMCITABINE
     Indication: Malignant neoplasm progression

REACTIONS (1)
  - Pneumonitis [Recovered/Resolved]

NARRATIVE: CASE EVENT DATE: 20230101
